FAERS Safety Report 15041972 (Version 3)
Quarter: 2018Q3

REPORT INFORMATION
  Report Type: Spontaneous
  Country: CH (occurrence: CH)
  Receive Date: 20180621
  Receipt Date: 20180718
  Transmission Date: 20181010
  Serious: Yes (Hospitalization, Other)
  Sender: FDA-Public Use
  Company Number: CH-ACCORD-068599

PATIENT
  Age: 63 Year
  Sex: Male

DRUGS (7)
  1. CLOZAPINE. [Suspect]
     Active Substance: CLOZAPINE
     Indication: SCHIZOPHRENIA
     Dosage: REDUCED THE DOSE OF CLOZAPINE FROM 300 MG / DAY TO 100 MG /DAY
  2. AMOXICILLIN SODIUM/CLAVULANATE POTASSIUM [Concomitant]
  3. TIOTROPIUM/TIOTROPIUM BROMIDE [Concomitant]
     Dosage: INHALANT
  4. PROPRANOLOL [Concomitant]
     Active Substance: PROPRANOLOL HYDROCHLORIDE
     Dosage: 60 MG
  5. BUDESONIDE/FORMOTEROL [Concomitant]
     Dosage: FORMOTEROL / BUDESONIDE 400 UG /?12UG, INHALANT
  6. VALPROIC ACID. [Concomitant]
     Active Substance: VALPROIC ACID
     Dosage: 1500 MG
  7. CLOZAPINE. [Interacting]
     Active Substance: CLOZAPINE
     Indication: SCHIZOPHRENIA
     Dosage: REDUCED THE DOSE OF CLOZAPINE FROM 300 MG / DAY TO 100 MG /DAY

REACTIONS (7)
  - Toxicity to various agents [Unknown]
  - Drug level increased [Recovered/Resolved]
  - Confusional state [Recovered/Resolved]
  - Altered state of consciousness [Unknown]
  - Salivary hypersecretion [Recovered/Resolved]
  - Drug interaction [Unknown]
  - Pneumonia aspiration [Recovered/Resolved]
